FAERS Safety Report 22160522 (Version 2)
Quarter: 2023Q2

REPORT INFORMATION
  Report Type: Report from Study
  Country: AU (occurrence: AU)
  Receive Date: 20230331
  Receipt Date: 20230405
  Transmission Date: 20230722
  Serious: Yes (Other)
  Sender: FDA-Public Use
  Company Number: AU-BAYER-2023A040362

PATIENT
  Sex: Male

DRUGS (1)
  1. EYLEA [Suspect]
     Active Substance: AFLIBERCEPT
     Indication: Neovascular age-related macular degeneration
     Dosage: 8 WEEKLY, SOLUTION FOR INJECTION (STRENGTH: 40MG/ML)
     Route: 031
     Dates: start: 20221128

REACTIONS (1)
  - Metamorphopsia [Unknown]

NARRATIVE: CASE EVENT DATE: 20221128
